FAERS Safety Report 14424497 (Version 1)
Quarter: 2018Q1

REPORT INFORMATION
  Report Type: Spontaneous
  Country: NL (occurrence: NL)
  Receive Date: 20180123
  Receipt Date: 20180123
  Transmission Date: 20180509
  Serious: Yes (Other)
  Sender: FDA-Public Use
  Company Number: NL-TEVA-2018-NL-850913

PATIENT
  Age: 51 Year
  Sex: Female
  Weight: 70 kg

DRUGS (6)
  1. AMLODIPINE [Concomitant]
     Active Substance: AMLODIPINE BESYLATE
     Route: 065
  2. VALSARTAN 80MG [Concomitant]
     Active Substance: VALSARTAN
     Route: 065
  3. SPIRONOLACTONE. [Suspect]
     Active Substance: SPIRONOLACTONE
     Indication: HYPERTENSION
     Dosage: 25MG
     Route: 065
     Dates: start: 20171103, end: 20171122
  4. SIMVASTATINE 20MG [Concomitant]
     Route: 065
  5. VALSARTAN 180MG [Concomitant]
     Route: 065
  6. HCT 12,5 [Concomitant]
     Route: 065

REACTIONS (5)
  - Renal impairment [Unknown]
  - Dizziness [Unknown]
  - Blood creatinine increased [Unknown]
  - Breast pain [Unknown]
  - Vaginal haemorrhage [Unknown]

NARRATIVE: CASE EVENT DATE: 20171103
